FAERS Safety Report 8194727-6 (Version None)
Quarter: 2012Q1

REPORT INFORMATION
  Report Type: 
  Country: None (occurrence: None)
  Receive Date: 20120308
  Receipt Date: 20110217
  Transmission Date: 20120608
  Serious: No
  Sender: FDA-Public Use
  Company Number: US-GLAXOSMITHKLINE-A0914139A

PATIENT
  Age: 47 Year
  Sex: Female

DRUGS (4)
  1. NICORETTE (MINT) [Suspect]
     Indication: EX-TOBACCO USER
  2. NICODERM CQ [Suspect]
  3. NICODERM CQ [Suspect]
  4. NICODERM CQ [Suspect]

REACTIONS (4)
  - MALAISE [None]
  - NICOTINE DEPENDENCE [None]
  - DRUG ADMINISTRATION ERROR [None]
  - COUGH [None]
